FAERS Safety Report 11696902 (Version 1)
Quarter: 2015Q4

REPORT INFORMATION
  Report Type: Spontaneous
  Country: US (occurrence: None)
  Receive Date: 20151104
  Receipt Date: 20151104
  Transmission Date: 20160304
  Serious: Yes (Hospitalization, Other)
  Sender: FDA-Public Use
  Company Number: ADR-2014-01350

PATIENT
  Age: 47 Year
  Sex: Male

DRUGS (1)
  1. LIORESAL [Suspect]
     Active Substance: BACLOFEN
     Indication: MUSCLE SPASTICITY
     Dosage: 350 MCG/DAY

REACTIONS (9)
  - Muscle spasms [None]
  - Accidental overdose [None]
  - Drug withdrawal syndrome [None]
  - Pain [None]
  - Device kink [None]
  - Muscle tightness [None]
  - Discomfort [None]
  - Device breakage [None]
  - Muscle spasticity [None]
